FAERS Safety Report 21206850 (Version 1)
Quarter: 2022Q3

REPORT INFORMATION
  Report Type: Spontaneous
  Country: SE (occurrence: SE)
  Receive Date: 20220812
  Receipt Date: 20220812
  Transmission Date: 20221026
  Serious: Yes (Hospitalization, Other)
  Sender: FDA-Public Use
  Company Number: None

PATIENT

DRUGS (1)
  1. BUPROPION HYDROCHLORIDE [Suspect]
     Active Substance: BUPROPION HYDROCHLORIDE
     Indication: Product used for unknown indication
     Dosage: UNK (ABOUT 3-5 G)
     Route: 042
     Dates: start: 20220727, end: 20220727

REACTIONS (6)
  - Toxicity to various agents [Unknown]
  - Throat tightness [Unknown]
  - Anxiety [Unknown]
  - Headache [Unknown]
  - Intentional self-injury [Unknown]
  - Derealisation [Unknown]

NARRATIVE: CASE EVENT DATE: 20220727
